FAERS Safety Report 18645440 (Version 1)
Quarter: 2020Q4

REPORT INFORMATION
  Report Type: Spontaneous
  Country: DE (occurrence: DE)
  Receive Date: 20201222
  Receipt Date: 20201222
  Transmission Date: 20210114
  Serious: Yes (Other)
  Sender: FDA-Public Use
  Company Number: DE-AUROBINDO-AUR-APL-2020-061896

PATIENT
  Age: 59 Year
  Sex: Female
  Weight: 53 kg

DRUGS (4)
  1. RAMILICH [Concomitant]
     Active Substance: RAMIPRIL
     Indication: PRODUCT USED FOR UNKNOWN INDICATION
     Dosage: 2.5 MILLIGRAM, ONCE A DAY
     Route: 065
     Dates: start: 202012
  2. IBUPROFEN 600 MG FILM-COATED TABLET [Suspect]
     Active Substance: IBUPROFEN
     Indication: PRODUCT USED FOR UNKNOWN INDICATION
     Dosage: 600 MILLIGRAM, 3 TIMES A DAY (3 TABLETS DAILY)
     Route: 065
     Dates: start: 202010
  3. LORAZEPAM DURA [Concomitant]
     Active Substance: LORAZEPAM
     Indication: PRODUCT USED FOR UNKNOWN INDICATION
     Dosage: 1 MILLIGRAM, AS NECESSARY
     Route: 065
     Dates: start: 20201209
  4. OMEPRAZOL MYLAN [Concomitant]
     Active Substance: OMEPRAZOLE
     Indication: PRODUCT USED FOR UNKNOWN INDICATION
     Dosage: 20 MILLIGRAM, ONCE A DAY
     Route: 065
     Dates: start: 20201209

REACTIONS (6)
  - Pain [Unknown]
  - Dyspnoea at rest [Not Recovered/Not Resolved]
  - Palpitations [Not Recovered/Not Resolved]
  - Blood pressure fluctuation [Unknown]
  - Hypertension [Not Recovered/Not Resolved]
  - Dyspnoea [Not Recovered/Not Resolved]

NARRATIVE: CASE EVENT DATE: 202011
